FAERS Safety Report 12829195 (Version 1)
Quarter: 2016Q4

REPORT INFORMATION
  Report Type: Spontaneous
  Country: US (occurrence: US)
  Receive Date: 20161007
  Receipt Date: 20161007
  Transmission Date: 20170207
  Serious: No
  Sender: FDA-Public Use
  Company Number: US-SA-2016SA012035

PATIENT
  Age: 42 Year
  Sex: Male

DRUGS (2)
  1. AUBAGIO [Suspect]
     Active Substance: TERIFLUNOMIDE
     Indication: MULTIPLE SCLEROSIS
     Route: 048
  2. GABAPENTIN. [Concomitant]
     Active Substance: GABAPENTIN

REACTIONS (8)
  - Pollakiuria [Unknown]
  - Paraesthesia [Unknown]
  - Headache [Unknown]
  - Balance disorder [Unknown]
  - Pruritus [Unknown]
  - Weight decreased [Unknown]
  - Gait disturbance [Unknown]
  - Decreased appetite [Unknown]
